FAERS Safety Report 16467317 (Version 2)
Quarter: 2019Q2

REPORT INFORMATION
  Report Type: Spontaneous
  Country: BR (occurrence: BR)
  Receive Date: 20190624
  Receipt Date: 20190627
  Transmission Date: 20190711
  Serious: Yes (Death, Life-Threatening, Hospitalization, Other)
  Sender: FDA-Public Use
  Company Number: BR-SA-2019SA169392

PATIENT
  Age: 54 Year
  Sex: Female

DRUGS (15)
  1. CYCLOPHOSPHAMIDE. [Suspect]
     Active Substance: CYCLOPHOSPHAMIDE
     Dosage: 0.5 G/M2, QCY, FIRST CYCLE; INDUCTION THERAPY  (.5 G/M2 [860 MG] ON THE FOURTH DAY)
     Dates: start: 201808, end: 2018
  2. MYCOPHENOLATE MOFETIL. [Suspect]
     Active Substance: MYCOPHENOLATE MOFETIL
     Indication: IMMUNOSUPPRESSANT DRUG THERAPY
     Dosage: 2 G, QD
     Dates: start: 201810
  3. METHYLPREDNISOLONE. [Suspect]
     Active Substance: METHYLPREDNISOLONE
     Indication: LUPUS NEPHRITIS
     Dosage: 0.5 G (INDUCTION THERAPY)
     Dates: start: 201808, end: 201808
  4. CYCLOPHOSPHAMIDE. [Suspect]
     Active Substance: CYCLOPHOSPHAMIDE
     Indication: IMMUNOSUPPRESSANT DRUG THERAPY
     Dosage: 800 MG QCY(SECOND CYCLE OF CYCLOPHOSPHAMIDE)
     Dates: start: 201809, end: 2018
  5. THYMOGLOBULIN [Suspect]
     Active Substance: LAPINE T-LYMPHOCYTE IMMUNE GLOBULIN
     Indication: IMMUNOSUPPRESSANT DRUG THERAPY
     Dosage: 4.5 G/KG  INDUCTION IMMUNOSUPPRESSION; 3 DOSES ON ALTERNATE DAYS WITH THE FIRST DOSE 6 HOURS FOLLOWI
     Dates: start: 20180616
  6. CYCLOPHOSPHAMIDE. [Suspect]
     Active Substance: CYCLOPHOSPHAMIDE
     Indication: LUPUS NEPHRITIS
     Dosage: 750 MG QCY (THIRD CYCLE OF CYCLOPHOSPHAMIDE)
     Dates: start: 201810
  7. TACROLIMUS. [Suspect]
     Active Substance: TACROLIMUS
     Indication: LUPUS NEPHRITIS
     Dosage: 5 MG, QD
     Dates: start: 201810
  8. PREDNISONE. [Suspect]
     Active Substance: PREDNISONE
     Indication: LUPUS NEPHRITIS
     Dosage: 50 MG, QD
     Dates: start: 201810
  9. PREDNISONE. [Suspect]
     Active Substance: PREDNISONE
     Dosage: 30 MG QD (MAINTENANCE IMMUNOSUPPRESSION)
     Dates: start: 201806, end: 2018
  10. TACROLIMUS. [Suspect]
     Active Substance: TACROLIMUS
     Indication: IMMUNOSUPPRESSANT DRUG THERAPY
     Dosage: 5 MG, QD
     Dates: start: 201809, end: 2018
  11. PREDNISONE. [Suspect]
     Active Substance: PREDNISONE
     Indication: IMMUNOSUPPRESSANT DRUG THERAPY
     Dosage: 60 MG, QD
     Dates: start: 201809, end: 2018
  12. TACROLIMUS. [Suspect]
     Active Substance: TACROLIMUS
     Dosage: 13 MG QD (MAINTENANCE IMMUNOSUPPRESSION 2 MG/KG)
     Dates: start: 201806, end: 2018
  13. MYCOPHENOLATE MOFETIL. [Suspect]
     Active Substance: MYCOPHENOLATE MOFETIL
     Indication: LUPUS NEPHRITIS
     Dosage: 2.5 G, QD
     Dates: start: 201809, end: 2018
  14. MYCOPHENOLATE MOFETIL. [Suspect]
     Active Substance: MYCOPHENOLATE MOFETIL
     Dosage: 2 G QD (MAINTENANCE IMMUNOSUPPRESSION)
     Dates: start: 201806, end: 2018
  15. METHYLPREDNISOLONE. [Suspect]
     Active Substance: METHYLPREDNISOLONE
     Indication: IMMUNOSUPPRESSANT DRUG THERAPY

REACTIONS (11)
  - Septic shock [Fatal]
  - Cellulitis [Unknown]
  - Anaemia [Recovered/Resolved]
  - Sinusitis [Recovered/Resolved]
  - Febrile neutropenia [Recovered/Resolved]
  - Erysipelas [Fatal]
  - Colitis [Recovered/Resolved]
  - Cytomegalovirus infection [Recovered/Resolved]
  - Neutropenia [Recovered/Resolved]
  - Klebsiella infection [Recovered/Resolved]
  - Oral herpes [Recovered/Resolved]

NARRATIVE: CASE EVENT DATE: 2018
